FAERS Safety Report 13766051 (Version 1)
Quarter: 2017Q3

REPORT INFORMATION
  Report Type: Spontaneous
  Country: US (occurrence: US)
  Receive Date: 20170718
  Receipt Date: 20170718
  Transmission Date: 20171127
  Serious: No
  Sender: FDA-Public Use
  Company Number: US-ENDO PHARMACEUTICALS INC-2016-007001

PATIENT
  Age: 57 Year
  Sex: Male
  Weight: 80.36 kg

DRUGS (3)
  1. TRIAMCINOLONE ACETONIDE CREAM 0.1 [Suspect]
     Active Substance: TRIAMCINOLONE ACETONIDE
     Indication: PRODUCT USED FOR UNKNOWN INDICATION
     Route: 061
     Dates: start: 201608, end: 20161121
  2. XANAX [Concomitant]
     Active Substance: ALPRAZOLAM
     Indication: ANXIETY
  3. KLONOPIN [Concomitant]
     Active Substance: CLONAZEPAM
     Indication: SEIZURE

REACTIONS (1)
  - Blood alcohol increased [Unknown]

NARRATIVE: CASE EVENT DATE: 20161121
